FAERS Safety Report 23102472 (Version 2)
Quarter: 2023Q4

REPORT INFORMATION
  Report Type: Spontaneous
  Country: US (occurrence: US)
  Receive Date: 20231025
  Receipt Date: 20231103
  Transmission Date: 20240110
  Serious: No
  Sender: FDA-Public Use
  Company Number: US-GLAXOSMITHKLINE-US2023AMR145405

PATIENT
  Sex: Female

DRUGS (1)
  1. ZEJULA [Suspect]
     Active Substance: NIRAPARIB
     Indication: Ovarian cancer
     Dosage: 300 MG, QD

REACTIONS (9)
  - Feeling abnormal [Unknown]
  - Pharyngeal swelling [Unknown]
  - Bone pain [Unknown]
  - Memory impairment [Unknown]
  - Decreased activity [Unknown]
  - Arthralgia [Unknown]
  - Ageusia [Unknown]
  - Cold-stimulus headache [Unknown]
  - Product dose omission issue [Unknown]
